FAERS Safety Report 4563009-3 (Version None)
Quarter: 2005Q1

REPORT INFORMATION
  Report Type: 
  Country: None (occurrence: None)
  Receive Date: 20050126
  Receipt Date: 20050114
  Transmission Date: 20050727
  Serious: Yes (Other)
  Sender: FDA-Public Use
  Company Number: 2005014684

PATIENT
  Sex: Female

DRUGS (2)
  1. ROLAIDS SOFT CHEWS VANILLA CREME (CALCIUM CARBONATE) [Suspect]
     Dosage: 1 CHEW 6 TIMES PER DAY, ORAL
     Route: 048
     Dates: start: 20041201
  2. CLOPIDOGREL BISULFATE [Concomitant]

REACTIONS (1)
  - GASTRIC HAEMORRHAGE [None]
